FAERS Safety Report 7494513-6 (Version None)
Quarter: 2011Q2

REPORT INFORMATION
  Report Type: 
  Country: None (occurrence: None)
  Receive Date: 20110520
  Receipt Date: 20110506
  Transmission Date: 20111010
  Serious: Yes (Hospitalization, Other)
  Sender: FDA-Public Use
  Company Number: PHHY2011DE20682

PATIENT
  Sex: Female

DRUGS (4)
  1. OBSIDAN [Concomitant]
     Indication: PANCREATIC NEUROENDOCRINE TUMOUR
     Dosage: 1 DF, QD
     Dates: start: 20070101
  2. PANTOPRAZOLE [Concomitant]
     Indication: PANCREATIC NEUROENDOCRINE TUMOUR
     Dosage: 1 DF, QD
  3. PROGLYCEM [Concomitant]
     Indication: PANCREATIC NEUROENDOCRINE TUMOUR
     Dates: start: 20070101
  4. SANDOSTATIN LAR [Suspect]
     Indication: PANCREATIC NEUROENDOCRINE TUMOUR
     Dosage: 30 MG, PER 28 DAYS
     Route: 030
     Dates: start: 20070101

REACTIONS (3)
  - NEOPLASM MALIGNANT [None]
  - FLUSHING [None]
  - DIARRHOEA [None]
